FAERS Safety Report 5702687-X (Version None)
Quarter: 2008Q2

REPORT INFORMATION
  Report Type: 
  Country: None (occurrence: None)
  Receive Date: 20080410
  Receipt Date: 20080410
  Transmission Date: 20081010
  Serious: Yes (Other)
  Sender: FDA-Public Use
  Company Number: None

PATIENT
  Age: 87 Year
  Sex: Female
  Weight: 63.5036 kg

DRUGS (1)
  1. VYTORIN [Suspect]
     Indication: BLOOD CHOLESTEROL INCREASED
     Dosage: ONE TABLET EVERY DAY PO
     Route: 048
     Dates: start: 20070825, end: 20080406

REACTIONS (3)
  - ASTHENIA [None]
  - BACK PAIN [None]
  - PRURITUS [None]
